FAERS Safety Report 6685888-6 (Version None)
Quarter: 2010Q2

REPORT INFORMATION
  Report Type: 
  Country: None (occurrence: None)
  Receive Date: 20100419
  Receipt Date: 20100408
  Transmission Date: 20101027
  Serious: Yes (Other)
  Sender: FDA-Public Use
  Company Number: US-ASTRAZENECA-2009SE22897

PATIENT
  Age: 77 Year
  Sex: Female
  Weight: 53.5 kg

DRUGS (6)
  1. CRESTOR [Suspect]
     Indication: BLOOD CHOLESTEROL
     Route: 048
     Dates: start: 20091101
  2. CRESTOR [Suspect]
     Route: 048
     Dates: end: 20100301
  3. CALCIUM [Concomitant]
  4. THYROID MEDICATION [Concomitant]
  5. VITAMINS [Concomitant]
  6. ATIVAN [Concomitant]

REACTIONS (6)
  - CHROMATURIA [None]
  - FOOT FRACTURE [None]
  - HEPATIC ENZYME INCREASED [None]
  - HEPATITIS [None]
  - MYALGIA [None]
  - WRONG TECHNIQUE IN DRUG USAGE PROCESS [None]
